FAERS Safety Report 5069712-3 (Version None)
Quarter: 2006Q3

REPORT INFORMATION
  Report Type: 
  Country: None (occurrence: None)
  Receive Date: 20060803
  Receipt Date: 20060726
  Transmission Date: 20061208
  Serious: Yes (Other)
  Sender: FDA-Public Use
  Company Number: PT-JNJFOC-20060705800

PATIENT
  Sex: Female

DRUGS (6)
  1. REMINYL [Suspect]
     Indication: DEMENTIA ALZHEIMER'S TYPE
     Route: 048
  2. RISIDON [Concomitant]
     Route: 065
  3. FLUDEX [Concomitant]
     Route: 065
  4. MONOPRONT [Concomitant]
     Route: 065
  5. ISOPTIN [Concomitant]
     Route: 065
  6. CENTRUM [Concomitant]
     Route: 065

REACTIONS (1)
  - HEPATITIS [None]
